FAERS Safety Report 6771041-4 (Version None)
Quarter: 2010Q2

REPORT INFORMATION
  Report Type: 
  Country: None (occurrence: None)
  Receive Date: 20100616
  Receipt Date: 20100416
  Transmission Date: 20101027
  Serious: Yes (Hospitalization, Other)
  Sender: FDA-Public Use
  Company Number: US-BAYER-200926705NA

PATIENT
  Age: 50 Year
  Sex: Female
  Weight: 73 kg

DRUGS (7)
  1. YAZ [Suspect]
     Indication: PREMENSTRUAL SYNDROME
     Route: 048
     Dates: start: 20061002, end: 20070720
  2. YASMIN [Suspect]
     Indication: DRUG USE FOR UNKNOWN INDICATION
  3. CIPROFLOXACIN [Concomitant]
     Dates: start: 20071010, end: 20071013
  4. CEFUROXIME [Concomitant]
     Dates: start: 20061211, end: 20061221
  5. LEVAQUIN [Concomitant]
     Dosage: TOTAL DAILY DOSE: 250 MG  UNIT DOSE: 250 MG
     Route: 048
     Dates: start: 20070725, end: 20070731
  6. ALEVE (CAPLET) [Concomitant]
     Dates: start: 20010101
  7. MULTI-VITAMIN [Concomitant]
     Dates: start: 20070720

REACTIONS (7)
  - CHEST DISCOMFORT [None]
  - CHEST PAIN [None]
  - DYSPNOEA [None]
  - MUSCULOSKELETAL CHEST PAIN [None]
  - MUSCULOSKELETAL PAIN [None]
  - PLEURITIC PAIN [None]
  - PULMONARY EMBOLISM [None]
